FAERS Safety Report 23455268 (Version 2)
Quarter: 2024Q1

REPORT INFORMATION
  Report Type: Report from Study
  Country: BR (occurrence: BR)
  Receive Date: 20240130
  Receipt Date: 20240206
  Transmission Date: 20240409
  Serious: Yes (Hospitalization)
  Sender: FDA-Public Use
  Company Number: BR-CELLTRION INC.-2024BR002024

PATIENT

DRUGS (4)
  1. INFLIXIMAB [Suspect]
     Active Substance: INFLIXIMAB
     Indication: Colitis ulcerative
     Dosage: 3 AMPOULES
     Route: 042
     Dates: start: 20231204
  2. INFLIXIMAB [Suspect]
     Active Substance: INFLIXIMAB
     Dosage: 3 AMPOULES
     Route: 042
     Dates: start: 20240104
  3. XARELTO [Concomitant]
     Active Substance: RIVAROXABAN
     Indication: Anticoagulant therapy
     Dosage: 1 TABLET A DAY
     Route: 048
  4. AZATHIOPRINE [Concomitant]
     Active Substance: AZATHIOPRINE
     Indication: Colitis ulcerative
     Dosage: 2 TABLETS A DAY
     Route: 048

REACTIONS (6)
  - Infection [Recovering/Resolving]
  - Abdominal pain [Recovering/Resolving]
  - Vomiting [Recovering/Resolving]
  - Nausea [Recovering/Resolving]
  - Pyrexia [Recovering/Resolving]
  - Abdominal pain upper [Recovering/Resolving]

NARRATIVE: CASE EVENT DATE: 20240116
